FAERS Safety Report 7575093-3 (Version None)
Quarter: 2011Q2

REPORT INFORMATION
  Report Type: 
  Country: None (occurrence: None)
  Receive Date: 20110627
  Receipt Date: 20110621
  Transmission Date: 20111010
  Serious: Yes (Hospitalization, Other)
  Sender: FDA-Public Use
  Company Number: US-PFIZER INC-2011104884

PATIENT
  Sex: Female
  Weight: 61.224 kg

DRUGS (7)
  1. ZANAFLEX [Suspect]
     Indication: FIBROMYALGIA
     Dosage: 4 MG, 2X/DAY
     Route: 048
  2. LYRICA [Suspect]
     Indication: FIBROMYALGIA
     Dosage: 75 MG, 2X/DAY
     Route: 048
  3. AMITRIPTYLINE [Suspect]
     Indication: FIBROMYALGIA
     Dosage: 25 MG, 1X/DAY
     Route: 048
  4. CYMBALTA [Concomitant]
     Indication: FIBROMYALGIA
     Dosage: 60 MG, 1X/DAY
     Route: 048
  5. ZANAFLEX [Suspect]
     Indication: SLEEP DISORDER
  6. SINGULAIR [Concomitant]
     Indication: HYPERSENSITIVITY
     Dosage: 10 MG, 1X/DAY
     Route: 048
  7. AMITRIPTYLINE [Suspect]
     Indication: SLEEP DISORDER

REACTIONS (6)
  - FEELING ABNORMAL [None]
  - INTENTIONAL OVERDOSE [None]
  - ASTHMA [None]
  - MENTAL DISORDER [None]
  - THYROID DISORDER [None]
  - SUICIDE ATTEMPT [None]
